FAERS Safety Report 13506863 (Version 5)
Quarter: 2018Q1

REPORT INFORMATION
  Report Type: Report from Study
  Country: None (occurrence: US)
  Receive Date: 20170502
  Receipt Date: 20180316
  Transmission Date: 20180508
  Serious: Yes (Other)
  Sender: FDA-Public Use
  Company Number: US-ABBVIE-17K-163-1955154-00

PATIENT
  Sex: Male

DRUGS (1)
  1. HUMIRA [Suspect]
     Active Substance: ADALIMUMAB
     Indication: PSORIASIS
     Route: 058

REACTIONS (8)
  - Fungal skin infection [Recovering/Resolving]
  - Psoriasis [Not Recovered/Not Resolved]
  - Colon cancer stage IV [Not Recovered/Not Resolved]
  - Spinal column stenosis [Not Recovered/Not Resolved]
  - Hernia [Unknown]
  - Back injury [Not Recovered/Not Resolved]
  - Spinal fracture [Unknown]
  - Arthralgia [Not Recovered/Not Resolved]
